FAERS Safety Report 25785002 (Version 1)
Quarter: 2025Q3

REPORT INFORMATION
  Report Type: Spontaneous
  Country: US (occurrence: US)
  Receive Date: 20250910
  Receipt Date: 20250910
  Transmission Date: 20251021
  Serious: No
  Sender: ROCHE
  Company Number: US-ROCHE-10000377350

PATIENT
  Sex: Female

DRUGS (1)
  1. OCREVUS [Suspect]
     Active Substance: OCRELIZUMAB
     Indication: Multiple sclerosis
     Dosage: FORM STRENGTH: 300MG/10ML
     Route: 042
     Dates: start: 201912

REACTIONS (3)
  - Muscle spasms [Unknown]
  - Myalgia [Unknown]
  - Neuropathy peripheral [Unknown]
